FAERS Safety Report 6439904-7 (Version None)
Quarter: 2009Q4

REPORT INFORMATION
  Report Type: 
  Country: None (occurrence: None)
  Receive Date: 20091110
  Receipt Date: 20091027
  Transmission Date: 20100525
  Serious: Yes (Other)
  Sender: FDA-Public Use
  Company Number: 234143K09USA

PATIENT
  Age: 48 Year
  Sex: Female
  Weight: 65 kg

DRUGS (12)
  1. REBIF [Suspect]
     Indication: MULTIPLE SCLEROSIS
     Dosage: 44 MCG, 3 IN 1 WEEKS, SUBCUTANEOUS
     Route: 058
     Dates: start: 20080116
  2. TRAZODONE HCL [Suspect]
     Indication: SLEEP DISORDER
     Dosage: 150 MG; 300 MG, 1 IN 1 DAYS;  150 MG, 1 IN 1 DAYS
     Dates: start: 19990101, end: 20081001
  3. TRAZODONE HCL [Suspect]
     Indication: SLEEP DISORDER
     Dosage: 150 MG; 300 MG, 1 IN 1 DAYS;  150 MG, 1 IN 1 DAYS
     Dates: start: 20090107, end: 20090101
  4. TRAZODONE HCL [Suspect]
     Indication: SLEEP DISORDER
     Dosage: 150 MG; 300 MG, 1 IN 1 DAYS;  150 MG, 1 IN 1 DAYS
     Dates: start: 20081001
  5. TRAZODONE HCL [Suspect]
     Indication: SLEEP DISORDER
     Dosage: 150 MG; 300 MG, 1 IN 1 DAYS;  150 MG, 1 IN 1 DAYS
     Dates: start: 20090101
  6. LISINOPRIL [Concomitant]
  7. HYDROCHLOROTHIAZIDE [Concomitant]
  8. DIAZEPAM [Concomitant]
  9. NEXIUM [Concomitant]
  10. KLONOPIN [Concomitant]
  11. NORCO [Concomitant]
  12. CYMBALTA [Concomitant]

REACTIONS (1)
  - CONVULSION [None]
